FAERS Safety Report 12697244 (Version 1)
Quarter: 2016Q3

REPORT INFORMATION
  Report Type: Spontaneous
  Country: US (occurrence: None)
  Receive Date: 20160829
  Receipt Date: 20160829
  Transmission Date: 20161109
  Serious: Yes (Hospitalization)
  Sender: FDA-Public Use
  Company Number: None

PATIENT
  Age: 82 Year
  Sex: Female
  Weight: 51.9 kg

DRUGS (13)
  1. LANOXIN [Concomitant]
     Active Substance: DIGOXIN
  2. HYDROXYZINE (ATARAX) [Concomitant]
  3. REMERON [Concomitant]
     Active Substance: MIRTAZAPINE
  4. HALOPERIDOL (HALDOL) [Concomitant]
  5. TYLENOL [Concomitant]
     Active Substance: ACETAMINOPHEN
  6. WARFARIN, 7MG [Suspect]
     Active Substance: WARFARIN
     Indication: ATRIAL FIBRILLATION
     Route: 048
  7. SYNTHROID [Concomitant]
     Active Substance: LEVOTHYROXINE SODIUM
  8. MAGNESIUM HYDROXIDE (MILK OF MAGNESIA) [Concomitant]
  9. OXYCODONE-ACETAMINOPHEN (PERCOCET) [Concomitant]
  10. PROMETHAZINE (PHENERGAN) [Concomitant]
  11. ASPIRIN EC [Concomitant]
     Active Substance: ASPIRIN
  12. PRAVACHOL [Concomitant]
     Active Substance: PRAVASTATIN SODIUM
  13. TORSEMIDE (DEMADEX) [Concomitant]

REACTIONS (10)
  - Arteriovenous malformation [None]
  - Dyspepsia [None]
  - Melaena [None]
  - Polyp [None]
  - Gastrointestinal haemorrhage [None]
  - Diverticulum [None]
  - Haemorrhoids [None]
  - Haemoglobin decreased [None]
  - Fatigue [None]
  - International normalised ratio increased [None]

NARRATIVE: CASE EVENT DATE: 20160807
